FAERS Safety Report 6298060-9 (Version None)
Quarter: 2009Q3

REPORT INFORMATION
  Report Type: 
  Country: None (occurrence: None)
  Receive Date: 20090804
  Receipt Date: 20090804
  Transmission Date: 20100115
  Serious: Yes (Other)
  Sender: FDA-Public Use
  Company Number: None

PATIENT
  Age: 61 Year
  Sex: Female
  Weight: 65.7716 kg

DRUGS (1)
  1. SPIRIVA [Suspect]
     Indication: CHRONIC OBSTRUCTIVE PULMONARY DISEASE
     Dosage: 1 INHALATION DAILY INHAL
     Route: 055
     Dates: start: 20090201, end: 20090616

REACTIONS (4)
  - CYSTITIS HAEMORRHAGIC [None]
  - OVARIAN CYST [None]
  - OVARIAN ENLARGEMENT [None]
  - URINARY TRACT INFECTION [None]
